FAERS Safety Report 25989398 (Version 2)
Quarter: 2025Q4

REPORT INFORMATION
  Report Type: Spontaneous
  Country: JP (occurrence: JP)
  Receive Date: 20251103
  Receipt Date: 20251113
  Transmission Date: 20260117
  Serious: Yes (Hospitalization)
  Sender: ABBVIE
  Company Number: JP-ABBVIE-6528122

PATIENT

DRUGS (1)
  1. NORVIR [Suspect]
     Active Substance: RITONAVIR
     Indication: HIV infection
     Dosage: FORM STRENGTH: 100  MILLIGRAM
     Route: 048

REACTIONS (4)
  - COVID-19 [Unknown]
  - Dysphagia [Unknown]
  - Cognitive disorder [Unknown]
  - Delirium [Unknown]
